FAERS Safety Report 20695807 (Version 3)
Quarter: 2022Q2

REPORT INFORMATION
  Report Type: Spontaneous
  Country: US (occurrence: US)
  Receive Date: 20220411
  Receipt Date: 20220525
  Transmission Date: 20220721
  Serious: Yes (Other)
  Sender: FDA-Public Use
  Company Number: US-BIOCODEX2-2022000239

PATIENT

DRUGS (7)
  1. DIACOMIT [Suspect]
     Active Substance: STIRIPENTOL
     Indication: Severe myoclonic epilepsy of infancy
     Dosage: 500 MG, QD
     Dates: start: 20210924
  2. DIACOMIT [Suspect]
     Active Substance: STIRIPENTOL
     Dosage: 625 MG, QD
  3. ONFI [Concomitant]
     Active Substance: CLOBAZAM
     Indication: Severe myoclonic epilepsy of infancy
     Dosage: 2.5 TABS DAILY
  4. DIAZEPAM [Concomitant]
     Active Substance: DIAZEPAM
     Indication: Severe myoclonic epilepsy of infancy
     Dosage: 10 MG PRN
  5. FINTEPLA [Concomitant]
     Active Substance: FENFLURAMINE
     Indication: Severe myoclonic epilepsy of infancy
     Dosage: 2.5 ML BID
  6. KEPPRA [Concomitant]
     Active Substance: LEVETIRACETAM
     Indication: Severe myoclonic epilepsy of infancy
     Dosage: 3 TABS AM, 3.5 PM
  7. MIDAZOLAM [Concomitant]
     Active Substance: MIDAZOLAM
     Indication: Severe myoclonic epilepsy of infancy
     Dosage: 1 ML IN

REACTIONS (1)
  - Seizure [Recovered/Resolved]

NARRATIVE: CASE EVENT DATE: 20220413
